FAERS Safety Report 21932904 (Version 1)
Quarter: 2023Q1

REPORT INFORMATION
  Report Type: Spontaneous
  Country: GB (occurrence: GB)
  Receive Date: 20230131
  Receipt Date: 20230131
  Transmission Date: 20230417
  Serious: Yes (Disabling)
  Sender: FDA-Public Use
  Company Number: GB-MHRA-MED-202301261414421470-WJFDN

PATIENT
  Age: 55 Year
  Sex: Female
  Weight: 88 kg

DRUGS (2)
  1. GABAPENTIN [Suspect]
     Active Substance: GABAPENTIN
     Indication: Bone pain
     Dosage: UNK (600 TWICE A DAY)
     Route: 065
     Dates: start: 20190106
  2. IBRANCE [Concomitant]
     Active Substance: PALBOCICLIB
     Indication: Bone cancer
     Dosage: UNK
     Route: 065
     Dates: start: 20190106

REACTIONS (2)
  - Amnesia [Not Recovered/Not Resolved]
  - Medication error [Unknown]

NARRATIVE: CASE EVENT DATE: 20220106
